FAERS Safety Report 18888858 (Version 5)
Quarter: 2021Q3

REPORT INFORMATION
  Report Type: Spontaneous
  Country: US (occurrence: US)
  Receive Date: 20210213
  Receipt Date: 20210720
  Transmission Date: 20211014
  Serious: Yes (Other)
  Sender: FDA-Public Use
  Company Number: US-SA-2021SA042366

PATIENT
  Sex: Female

DRUGS (2)
  1. DUPIXENT [Suspect]
     Active Substance: DUPILUMAB
     Dosage: UNK
  2. DUPIXENT [Suspect]
     Active Substance: DUPILUMAB
     Indication: ASTHMA
     Dosage: 300 MG, QOW
     Route: 058

REACTIONS (14)
  - Visual impairment [Unknown]
  - Eye pain [Recovering/Resolving]
  - Headache [Recovering/Resolving]
  - Condition aggravated [Recovering/Resolving]
  - Unevaluable event [Unknown]
  - Gait disturbance [Unknown]
  - Chest pain [Recovering/Resolving]
  - Rectal haemorrhage [Unknown]
  - Cataract [Unknown]
  - Pain in extremity [Unknown]
  - Dizziness [Unknown]
  - Chest discomfort [Unknown]
  - Alopecia [Unknown]
  - Eye pruritus [Unknown]
